FAERS Safety Report 20671619 (Version 1)
Quarter: 2022Q2

REPORT INFORMATION
  Report Type: Spontaneous
  Country: CN (occurrence: CN)
  Receive Date: 20220404
  Receipt Date: 20220404
  Transmission Date: 20220720
  Serious: Yes (Hospitalization)
  Sender: FDA-Public Use
  Company Number: CN-BAXTER-2022BAX007205

PATIENT
  Age: 3 Year
  Sex: Male
  Weight: 15.3 kg

DRUGS (22)
  1. CYCLOPHOSPHAMIDE [Suspect]
     Active Substance: CYCLOPHOSPHAMIDE
     Indication: Acute lymphocytic leukaemia
     Dosage: CYCLOPHOSPHAMIDE (600 MG) + 0.9% SODIUM CHLORIDE (250 ML)
     Route: 041
     Dates: start: 20220318, end: 20220318
  2. CYCLOPHOSPHAMIDE [Suspect]
     Active Substance: CYCLOPHOSPHAMIDE
     Dosage: DOSE RE-INTRODUCED, CYCLOPHOSPHAMIDE + 0.9% SODIUM CHLORIDE
     Route: 041
  3. SODIUM CHLORIDE [Suspect]
     Active Substance: SODIUM CHLORIDE
     Indication: Medication dilution
     Dosage: CYCLOPHOSPHAMIDE (600 MG) + 0.9% SODIUM CHLORIDE (250 ML)
     Route: 041
     Dates: start: 20220318, end: 20220318
  4. SODIUM CHLORIDE [Suspect]
     Active Substance: SODIUM CHLORIDE
     Dosage: PEGASPARGASE (1250 IU) + SODIUM CHLORIDE (18 MG)
     Route: 030
     Dates: start: 20220318, end: 20220318
  5. SODIUM CHLORIDE [Suspect]
     Active Substance: SODIUM CHLORIDE
     Dosage: METHOTREXATE (5 MG) + CYTARABINE HYDROCHLORIDE (35 MG) + SODIUM CHLORIDE (18 MG)
     Route: 037
     Dates: start: 20220311, end: 20220317
  6. SODIUM CHLORIDE [Suspect]
     Active Substance: SODIUM CHLORIDE
     Dosage: DOSE RE-INTRODUCED, CYCLOPHOSPHAMIDE + 0.9% SODIUM CHLORIDE
     Route: 041
  7. SODIUM CHLORIDE [Suspect]
     Active Substance: SODIUM CHLORIDE
     Dosage: DOSE RE-INTRODUCED, PEGASPARGASE + SODIUM CHLORIDE
     Route: 030
  8. SODIUM CHLORIDE [Suspect]
     Active Substance: SODIUM CHLORIDE
     Dosage: DOSE RE-INTRODUCED, METHOTREXATE + CYTARABINE HYDROCHLORIDE + SODIUM CHLORIDE
     Route: 037
  9. DEXTROSE [Suspect]
     Active Substance: DEXTROSE
     Indication: Medication dilution
     Dosage: VINCRISTINE SULFATE (0.9 MG) + GLUCOSE (50 ML)
     Route: 041
     Dates: start: 20220318, end: 20220325
  10. DEXTROSE [Suspect]
     Active Substance: DEXTROSE
     Dosage: CYTARABINE HYDROCHLORIDE (30 MG) + GLUCOSE INJECTION (50 ML)
     Route: 041
     Dates: start: 20220318, end: 20220324
  11. DEXTROSE [Suspect]
     Active Substance: DEXTROSE
     Dosage: DOSE RE-INTRODUCED, VINCRISTINE SULFATE + GLUCOSE
     Route: 041
  12. DEXTROSE [Suspect]
     Active Substance: DEXTROSE
     Dosage: DOSE RE-INTRODUCED, CYTARABINE HYDROCHLORIDE + GLUCOSE INJECTION
     Route: 041
  13. METHOTREXATE [Suspect]
     Active Substance: METHOTREXATE
     Indication: Acute lymphocytic leukaemia
     Dosage: METHOTREXATE (5 MG) + CYTARABINE HYDROCHLORIDE (35 MG) + SODIUM CHLORIDE (18 MG)
     Route: 037
     Dates: start: 20220311, end: 20220317
  14. METHOTREXATE [Suspect]
     Active Substance: METHOTREXATE
     Dosage: DOSE RE-INTRODUCED, METHOTREXATE + CYTARABINE HYDROCHLORIDE + SODIUM CHLORIDE
     Route: 037
  15. CYTARABINE HYDROCHLORIDE [Suspect]
     Active Substance: CYTARABINE HYDROCHLORIDE
     Indication: Acute lymphocytic leukaemia
     Dosage: CYTARABINE HYDROCHLORIDE (30 MG) + GLUCOSE (50 ML)
     Route: 041
     Dates: start: 20220318, end: 20220324
  16. CYTARABINE HYDROCHLORIDE [Suspect]
     Active Substance: CYTARABINE HYDROCHLORIDE
     Dosage: METHOTREXATE (5 MG) + CYTARABINE HYDROCHLORIDE (35 MG) + SODIUM CHLORIDE (18 MG)
     Route: 037
     Dates: start: 20220311, end: 20220317
  17. CYTARABINE HYDROCHLORIDE [Suspect]
     Active Substance: CYTARABINE HYDROCHLORIDE
     Dosage: DOSE RE-INTRODUCED, CYTARABINE HYDROCHLORIDE + GLUCOSE
     Route: 042
  18. CYTARABINE HYDROCHLORIDE [Suspect]
     Active Substance: CYTARABINE HYDROCHLORIDE
     Dosage: DOSE RE-INTRODUCED, METHOTREXATE + CYTARABINE HYDROCHLORIDE + SODIUM CHLORIDE
     Route: 037
  19. PEGASPARGASE [Suspect]
     Active Substance: PEGASPARGASE
     Indication: Acute lymphocytic leukaemia
     Dosage: PEGASPARGASE (1250 IU) + SODIUM CHLORIDE (18 MG)
     Route: 030
     Dates: start: 20220318, end: 20220318
  20. PEGASPARGASE [Suspect]
     Active Substance: PEGASPARGASE
     Dosage: DOSE RE-INTRODUCED, PEGASPARGASE + SODIUM CHLORIDE
     Route: 030
  21. VINCRISTINE SULFATE [Suspect]
     Active Substance: VINCRISTINE SULFATE
     Indication: Acute lymphocytic leukaemia
     Dosage: VINCRISTINE SULFATE (0.9 MG) + GLUCOSE (50 ML)
     Route: 041
     Dates: start: 20220318, end: 20220325
  22. VINCRISTINE SULFATE [Suspect]
     Active Substance: VINCRISTINE SULFATE
     Dosage: DOSE RE-INTRODUCED, VINCRISTINE SULFATE + GLUCOSE
     Route: 041

REACTIONS (2)
  - Myelosuppression [Unknown]
  - Platelet count decreased [Unknown]

NARRATIVE: CASE EVENT DATE: 20220329
